FAERS Safety Report 10810697 (Version 1)
Quarter: 2015Q1

REPORT INFORMATION
  Report Type: Report from Study
  Country: US (occurrence: US)
  Receive Date: 20150217
  Receipt Date: 20150217
  Transmission Date: 20150721
  Serious: No
  Sender: FDA-Public Use
  Company Number: US-ABBVIE-14K-163-1269989-00

PATIENT
  Age: 41 Year
  Sex: Female

DRUGS (10)
  1. PREMARIN [Concomitant]
     Active Substance: ESTROGENS, CONJUGATED
     Indication: HORMONE REPLACEMENT THERAPY
  2. IMURAN [Concomitant]
     Active Substance: AZATHIOPRINE
     Indication: PRODUCT USED FOR UNKNOWN INDICATION
  3. PHENERGAN [Concomitant]
     Active Substance: PROMETHAZINE HYDROCHLORIDE
     Indication: NAUSEA
  4. LORTAB [Concomitant]
     Active Substance: ACETAMINOPHEN\HYDROCODONE BITARTRATE
     Indication: PAIN
     Dosage: 10/325 MG
  5. LYRICA [Concomitant]
     Active Substance: PREGABALIN
     Indication: ARTHRALGIA
  6. HUMIRA [Suspect]
     Active Substance: ADALIMUMAB
     Dates: start: 20140620, end: 20140620
  7. HUMIRA [Suspect]
     Active Substance: ADALIMUMAB
     Indication: CROHN^S DISEASE
     Dates: start: 20140606, end: 20140606
  8. HUMIRA [Suspect]
     Active Substance: ADALIMUMAB
     Dates: start: 2014
  9. HUMIRA [Suspect]
     Active Substance: ADALIMUMAB
     Dates: start: 20140607, end: 20140607
  10. REGLAN [Concomitant]
     Active Substance: METOCLOPRAMIDE HYDROCHLORIDE
     Indication: GASTROOESOPHAGEAL REFLUX DISEASE
     Dosage: AT NIGHT

REACTIONS (2)
  - Incorrect dose administered [Not Recovered/Not Resolved]
  - Injection site pain [Not Recovered/Not Resolved]

NARRATIVE: CASE EVENT DATE: 20140606
